FAERS Safety Report 17888784 (Version 2)
Quarter: 2022Q4

REPORT INFORMATION
  Report Type: Spontaneous
  Country: US (occurrence: US)
  Receive Date: 20200612
  Receipt Date: 20221031
  Transmission Date: 20230113
  Serious: Yes (Other)
  Sender: FDA-Public Use
  Company Number: US-UCBSA-2020023135

PATIENT
  Sex: Female

DRUGS (9)
  1. LEVETIRACETAM [Suspect]
     Active Substance: LEVETIRACETAM
     Indication: Atonic seizures
     Dosage: UNK
  2. LACOSAMIDE [Suspect]
     Active Substance: LACOSAMIDE
     Indication: Atonic seizures
     Dosage: UNK
  3. TOPIRAMATE [Suspect]
     Active Substance: TOPIRAMATE
     Indication: Atonic seizures
     Dosage: UNK
  4. VALPROIC ACID [Suspect]
     Active Substance: VALPROIC ACID
     Indication: Atonic seizures
     Dosage: UNK
  5. CLONAZEPAM [Suspect]
     Active Substance: CLONAZEPAM
     Indication: Atonic seizures
     Dosage: UNK
  6. OXCARBAZEPINE [Suspect]
     Active Substance: OXCARBAZEPINE
     Indication: Atonic seizures
     Dosage: UNK
  7. PHENOBARBITAL [Suspect]
     Active Substance: PHENOBARBITAL
     Indication: Atonic seizures
     Dosage: UNK
  8. ZONISAMIDE [Suspect]
     Active Substance: ZONISAMIDE
     Indication: Atonic seizures
     Dosage: UNK
  9. CANNABIDIOL [Suspect]
     Active Substance: CANNABIDIOL
     Indication: Atonic seizures
     Dosage: UNK

REACTIONS (2)
  - Seizure [Unknown]
  - Multiple-drug resistance [Unknown]
